FAERS Safety Report 14807852 (Version 1)
Quarter: 2018Q2

REPORT INFORMATION
  Report Type: Spontaneous
  Country: JP (occurrence: JP)
  Receive Date: 20180425
  Receipt Date: 20180425
  Transmission Date: 20180711
  Serious: Yes (Other)
  Sender: FDA-Public Use
  Company Number: JP-MYLANLABS-2018M1027548

PATIENT
  Age: 70 Year
  Sex: Female

DRUGS (2)
  1. ROPINIROLE. [Suspect]
     Active Substance: ROPINIROLE
     Dosage: 3 MG, QD
     Route: 065
  2. ROPINIROLE. [Suspect]
     Active Substance: ROPINIROLE
     Indication: POSTURAL TREMOR
     Dosage: AND INCREASED GRADUALLY
     Route: 065

REACTIONS (2)
  - Fall [Recovered/Resolved]
  - Camptocormia [Recovered/Resolved]
